FAERS Safety Report 5327188-2 (Version None)
Quarter: 2007Q2

REPORT INFORMATION
  Report Type: 
  Country: None (occurrence: None)
  Receive Date: 20070517
  Receipt Date: 20070511
  Transmission Date: 20071010
  Serious: Yes (Hospitalization, Other)
  Sender: FDA-Public Use
  Company Number: PHEH2007US07308

PATIENT
  Sex: Female

DRUGS (1)
  1. ZELNORM [Suspect]
     Indication: IMPAIRED GASTRIC EMPTYING
     Dosage: 6 MG, TID
     Dates: end: 20070401

REACTIONS (4)
  - CONDITION AGGRAVATED [None]
  - IMPAIRED GASTRIC EMPTYING [None]
  - NAUSEA [None]
  - VOMITING [None]
